FAERS Safety Report 7383939-7 (Version None)
Quarter: 2011Q1

REPORT INFORMATION
  Report Type: 
  Country: None (occurrence: None)
  Receive Date: 20110330
  Receipt Date: 20110325
  Transmission Date: 20110831
  Serious: Yes (Other)
  Sender: FDA-Public Use
  Company Number: GB-PFIZER INC-2010110888

PATIENT
  Age: 69 Year
  Sex: Female
  Weight: 66 kg

DRUGS (5)
  1. AMLODIPINE [Concomitant]
     Indication: HYPERTENSION
     Dosage: 10 MG, 1X/DAY
     Dates: start: 20071201
  2. LIPITOR [Suspect]
     Indication: PROPHYLAXIS
     Dosage: 10 MG, DAILY
     Route: 048
     Dates: start: 20051101, end: 20100101
  3. BENDROFLUAZIDE [Concomitant]
     Indication: HYPERTENSION
     Dosage: 2.5 MG, 1X/DAY
     Route: 048
     Dates: start: 20080201
  4. VENLAFAXINE [Concomitant]
     Indication: ANXIETY
     Dosage: 37.5 MG, 2X/DAY
     Route: 048
     Dates: start: 20100901
  5. VENLAFAXINE [Concomitant]
     Indication: DEPRESSION

REACTIONS (6)
  - NERVOUSNESS [None]
  - REFUSAL OF TREATMENT BY PATIENT [None]
  - TREMOR [None]
  - ANXIETY [None]
  - BALANCE DISORDER [None]
  - HAIR DISORDER [None]
